FAERS Safety Report 9701328 (Version 1)
Quarter: 2013Q4

REPORT INFORMATION
  Report Type: Spontaneous
  Country: US (occurrence: US)
  Receive Date: 20131121
  Receipt Date: 20131121
  Transmission Date: 20140711
  Serious: Yes (Hospitalization)
  Sender: FDA-Public Use
  Company Number: US-GILEAD-2008-0016531

PATIENT
  Sex: Male
  Weight: 65.77 kg

DRUGS (10)
  1. LETAIRIS [Suspect]
     Indication: PULMONARY ARTERIAL HYPERTENSION
     Route: 048
     Dates: start: 20080121
  2. PROTONIX [Concomitant]
     Route: 048
  3. LASIX [Concomitant]
     Route: 048
  4. COUMADIN [Concomitant]
     Route: 048
  5. INSPRA [Concomitant]
     Route: 048
  6. VENTAVIS [Concomitant]
     Route: 055
  7. ALLOPURINOL [Concomitant]
     Route: 048
  8. DIGOXIN [Concomitant]
     Route: 048
  9. COMBIVENT [Concomitant]
     Route: 055
  10. OXYGEN [Concomitant]
     Route: 055

REACTIONS (1)
  - Oedema [Unknown]
